FAERS Safety Report 22311426 (Version 4)
Quarter: 2024Q4

REPORT INFORMATION
  Report Type: Spontaneous
  Country: IN (occurrence: IN)
  Receive Date: 20230511
  Receipt Date: 20241220
  Transmission Date: 20250115
  Serious: Yes (Other)
  Sender: PFIZER
  Company Number: IN-PFIZER INC-202200223560

PATIENT
  Age: 46 Year
  Sex: Male
  Weight: 61.6 kg

DRUGS (2)
  1. LORLATINIB [Suspect]
     Active Substance: LORLATINIB
     Dosage: 100 MG, 1X/DAY
     Route: 048
     Dates: start: 20200821
  2. LEVETIRACETAM [Concomitant]
     Active Substance: LEVETIRACETAM
     Dosage: UNK
     Dates: start: 202008, end: 202212

REACTIONS (11)
  - Diabetes mellitus [Unknown]
  - Radiation retinopathy [Unknown]
  - Vision blurred [Recovering/Resolving]
  - Weight increased [Unknown]
  - Dyslipidaemia [Recovering/Resolving]
  - Vitamin D decreased [Unknown]
  - Joint swelling [Unknown]
  - Flank pain [Unknown]
  - Abdominal pain lower [Unknown]
  - Hyperlipidaemia [Recovering/Resolving]
  - Product dose omission issue [Unknown]

NARRATIVE: CASE EVENT DATE: 20211201
